FAERS Safety Report 10555193 (Version 1)
Quarter: 2014Q4

REPORT INFORMATION
  Report Type: Spontaneous
  Country: IT (occurrence: IT)
  Receive Date: 20141030
  Receipt Date: 20141030
  Transmission Date: 20150529
  Serious: Yes (Death, Hospitalization)
  Sender: FDA-Public Use
  Company Number: IT-BAYER-2014-154783

PATIENT
  Age: 94 Year
  Sex: Female
  Weight: 70 kg

DRUGS (5)
  1. OMEPRAZOLE. [Concomitant]
     Active Substance: OMEPRAZOLE
     Dosage: 20 MG, DAILY DOSE
     Route: 048
  2. CARDIOASPIRIN [Suspect]
     Active Substance: ASPIRIN
     Indication: PROPHYLAXIS
     Dosage: 100 MG, DAILY DOSE
     Route: 048
     Dates: start: 20100101, end: 20140818
  3. RAMIPRIL. [Concomitant]
     Active Substance: RAMIPRIL
     Dosage: 5 MG, DAILY DOSE
     Route: 048
  4. LASIX [Concomitant]
     Active Substance: FUROSEMIDE
     Dosage: 25 MG, DAILY DOSE
     Route: 048
  5. AMLODIPINE [Concomitant]
     Active Substance: AMLODIPINE BESYLATE
     Dosage: 10 MG, DAILY DOSE
     Route: 048

REACTIONS (3)
  - Psychomotor skills impaired [None]
  - Cerebral haemorrhage [Fatal]
  - Hemiplegia [None]

NARRATIVE: CASE EVENT DATE: 20140818
